FAERS Safety Report 14296996 (Version 1)
Quarter: 2017Q4

REPORT INFORMATION
  Report Type: Spontaneous
  Country: US (occurrence: US)
  Receive Date: 20171218
  Receipt Date: 20171218
  Transmission Date: 20180321
  Serious: Yes (Other)
  Sender: FDA-Public Use
  Company Number: US-GLAXOSMITHKLINE-US2017GSK193926

PATIENT
  Sex: Female

DRUGS (3)
  1. FLOVENT HFA [Suspect]
     Active Substance: FLUTICASONE PROPIONATE
     Indication: PRODUCT USED FOR UNKNOWN INDICATION
     Dosage: 2 PUFF(S), UNK
     Route: 055
  2. VENTOLIN HFA [Suspect]
     Active Substance: ALBUTEROL SULFATE
     Indication: PRODUCT USED FOR UNKNOWN INDICATION
     Dosage: UNK
     Route: 055
  3. FLOVENT HFA [Suspect]
     Active Substance: FLUTICASONE PROPIONATE
     Dosage: 3 PUFF(S), BID
     Route: 055

REACTIONS (6)
  - Nasopharyngitis [Unknown]
  - Respiratory tract infection [Unknown]
  - Cough [Unknown]
  - Asthma [Unknown]
  - Wrong technique in product usage process [Unknown]
  - Drug dose omission [Unknown]
